FAERS Safety Report 24666133 (Version 3)
Quarter: 2024Q4

REPORT INFORMATION
  Report Type: Spontaneous
  Country: IN (occurrence: IN)
  Receive Date: 20241126
  Receipt Date: 20241231
  Transmission Date: 20250115
  Serious: Yes (Life-Threatening, Hospitalization, Disabling, Other)
  Sender: PFIZER
  Company Number: IN-PFIZER INC-PV202400151474

PATIENT
  Age: 22 Year
  Sex: Male
  Weight: 73 kg

DRUGS (3)
  1. INOTUZUMAB OZOGAMICIN [Suspect]
     Active Substance: INOTUZUMAB OZOGAMICIN
     Indication: B-cell type acute leukaemia
     Dosage: 1 MG, WEEKLY
     Dates: start: 20241102, end: 20241120
  2. ACETAMINOPHEN [Concomitant]
     Active Substance: ACETAMINOPHEN
     Indication: Pyrexia
     Dosage: 1 MG, 4X/DAY (6 HOURLY)
  3. TRAMADOL [Concomitant]
     Active Substance: TRAMADOL
     Indication: Pain
     Dosage: 50 MG, 4X/DAY(6 HOURLY)

REACTIONS (5)
  - Wrong product administered [Not Recovered/Not Resolved]
  - Paralysis [Not Recovered/Not Resolved]
  - Urinary retention [Not Recovered/Not Resolved]
  - Pain [Not Recovered/Not Resolved]
  - Neoplasm progression [Not Recovered/Not Resolved]

NARRATIVE: CASE EVENT DATE: 20241111
